FAERS Safety Report 6480577-5 (Version None)
Quarter: 2009Q4

REPORT INFORMATION
  Report Type: 
  Country: None (occurrence: None)
  Receive Date: 20091123
  Receipt Date: 20090807
  Transmission Date: 20100525
  Serious: Yes (Hospitalization)
  Sender: FDA-Public Use
  Company Number: 8050051

PATIENT
  Age: 10 Year
  Sex: Female
  Weight: 31.75 kg

DRUGS (4)
  1. CIMZIA [Suspect]
     Dosage: SC
     Route: 058
  2. FOLIC ACID [Concomitant]
  3. PREDNISONE [Concomitant]
  4. RANITIDINE [Concomitant]

REACTIONS (1)
  - ABDOMINAL PAIN [None]
